FAERS Safety Report 7015985-7 (Version None)
Quarter: 2010Q3

REPORT INFORMATION
  Report Type: 
  Country: None (occurrence: None)
  Receive Date: 20100927
  Receipt Date: 20091012
  Transmission Date: 20110219
  Serious: No
  Sender: FDA-Public Use
  Company Number: US-ASTRAZENECA-2009SE19444

PATIENT
  Age: 849 Month
  Sex: Female
  Weight: 59 kg

DRUGS (5)
  1. ARIMIDEX [Suspect]
     Indication: BREAST CANCER
     Route: 048
     Dates: start: 20090701
  2. ATENOLOL [Concomitant]
  3. AVALIDE [Concomitant]
  4. TRICOR [Concomitant]
  5. SUGAR PILL [Concomitant]

REACTIONS (1)
  - URINARY INCONTINENCE [None]
